FAERS Safety Report 4590973-9 (Version None)
Quarter: 2005Q1

REPORT INFORMATION
  Report Type: 
  Country: None (occurrence: None)
  Receive Date: 20050222
  Receipt Date: 20050222
  Transmission Date: 20050727
  Serious: Yes (Other)
  Sender: FDA-Public Use
  Company Number: None

PATIENT
  Sex: Male
  Weight: 20.3 kg

DRUGS (1)
  1. PYRAZINAMIDE [Suspect]
     Indication: NEUROBLASTOMA
     Dosage: 21 MG/M2 /HR X 6 HRS
     Dates: start: 20041026

REACTIONS (10)
  - ALPHA HAEMOLYTIC STREPTOCOCCAL INFECTION [None]
  - BACTERIAL CULTURE POSITIVE [None]
  - BETA HAEMOLYTIC STREPTOCOCCAL INFECTION [None]
  - CHEST PAIN [None]
  - INFECTION [None]
  - LUNG NEOPLASM [None]
  - MEDICATION ERROR [None]
  - MORAXELLA INFECTION [None]
  - PNEUMONITIS [None]
  - UNDERDOSE [None]
